FAERS Safety Report 12623560 (Version 2)
Quarter: 2016Q3

REPORT INFORMATION
  Report Type: Spontaneous
  Country: CN (occurrence: CN)
  Receive Date: 20160804
  Receipt Date: 20160809
  Transmission Date: 20161109
  Serious: Yes (Death, Other)
  Sender: FDA-Public Use
  Company Number: PHHY2016CN107038

PATIENT
  Age: 60 Year
  Sex: Female

DRUGS (5)
  1. METHOTREXATE. [Suspect]
     Active Substance: METHOTREXATE
     Indication: PROPHYLAXIS AGAINST GRAFT VERSUS HOST DISEASE
     Dosage: 10 MG/M2, ON THE THIRD DAY AFTER TRANSPLANTATION
     Route: 042
  2. ANTITHYMOCYTE IMMUNOGLOBULIN [Suspect]
     Active Substance: THYMOCYTE IMMUNE GLOBULIN NOS
     Indication: PROPHYLAXIS AGAINST GRAFT VERSUS HOST DISEASE
     Dosage: 2.5 MG/KG, QD, DRIP FOR 2 DAYS BEFORE TRANSPLANTATION
     Route: 042
  3. NEORAL [Suspect]
     Active Substance: CYCLOSPORINE
     Indication: PROPHYLAXIS AGAINST GRAFT VERSUS HOST DISEASE
     Dosage: 5 MG/KG FOR 3-6 MONTHS
     Route: 048
  4. METHOTREXATE. [Suspect]
     Active Substance: METHOTREXATE
     Indication: STEM CELL TRANSPLANT
     Dosage: 15 MG/M2, ON DAY ONE AFTER TRANSPLANTATION
     Route: 042
  5. NEORAL [Suspect]
     Active Substance: CYCLOSPORINE
     Indication: STEM CELL TRANSPLANT
     Dosage: 2.5 MG/KG, QD ON THE DAY BEFORE TRANSPLANTATION
     Route: 042

REACTIONS (4)
  - Gastrointestinal infection [Unknown]
  - Acute myeloid leukaemia recurrent [Fatal]
  - Haemorrhage [Fatal]
  - Neutropenia [Unknown]
